FAERS Safety Report 9125410 (Version 2)
Quarter: 2013Q2

REPORT INFORMATION
  Report Type: Spontaneous
  Country: US (occurrence: US)
  Receive Date: 20130117
  Receipt Date: 20130423
  Transmission Date: 20140414
  Serious: Yes (Other)
  Sender: FDA-Public Use
  Company Number: US-BRISTOL-MYERS SQUIBB COMPANY-17114836

PATIENT
  Age: 80 Year
  Sex: Male

DRUGS (2)
  1. YERVOY [Suspect]
     Indication: METASTATIC MALIGNANT MELANOMA
     Dosage: THIRD DOSE WAS INTERR AND RESTARTED-29OCT12?RECEIVED ON 18SEP12,6NOV12,28NOV12
     Route: 042
     Dates: start: 20120823
  2. MULTAQ [Concomitant]

REACTIONS (3)
  - Enterocolitis [Unknown]
  - Rash [Unknown]
  - Neuropathy peripheral [Unknown]
